FAERS Safety Report 17850024 (Version 1)
Quarter: 2020Q2

REPORT INFORMATION
  Report Type: Spontaneous
  Country: US (occurrence: US)
  Receive Date: 20200602
  Receipt Date: 20200602
  Transmission Date: 20200714
  Serious: No
  Sender: FDA-Public Use
  Company Number: None

PATIENT
  Age: 78 Year
  Sex: Male
  Weight: 65.7 kg

DRUGS (11)
  1. NINLARO [Suspect]
     Active Substance: IXAZOMIB CITRATE
     Indication: PLASMA CELL MYELOMA
     Route: 048
     Dates: start: 20200512, end: 20200602
  2. DEXAMETHASONE. [Concomitant]
     Active Substance: DEXAMETHASONE
  3. ASPIRIN. [Concomitant]
     Active Substance: ASPIRIN
  4. BETAMETHASONE. [Concomitant]
     Active Substance: BETAMETHASONE
  5. WELCHOL [Concomitant]
     Active Substance: COLESEVELAM HYDROCHLORIDE
  6. MAGNESIUM [Concomitant]
     Active Substance: MAGNESIUM
  7. MVI [Concomitant]
     Active Substance: VITAMINS
  8. ACYCLOVIR. [Concomitant]
     Active Substance: ACYCLOVIR
  9. METOPROLOL. [Concomitant]
     Active Substance: METOPROLOL
  10. PROSCAR [Concomitant]
     Active Substance: FINASTERIDE
  11. RESTASIS [Concomitant]
     Active Substance: CYCLOSPORINE

REACTIONS (2)
  - Platelet count decreased [None]
  - Constipation [None]

NARRATIVE: CASE EVENT DATE: 20200602
